FAERS Safety Report 16799793 (Version 1)
Quarter: 2019Q3

REPORT INFORMATION
  Report Type: Spontaneous
  Country: CN (occurrence: CN)
  Receive Date: 20190912
  Receipt Date: 20190912
  Transmission Date: 20191005
  Serious: Yes (Other)
  Sender: FDA-Public Use
  Company Number: CN-PFIZER INC-2019391532

PATIENT
  Age: 46 Year
  Sex: Male
  Weight: 56 kg

DRUGS (2)
  1. IODIZED OIL [Suspect]
     Active Substance: IODIZED OIL
     Indication: HEPATIC CANCER
     Dosage: 10 ML, 1X/DAY
     Route: 013
     Dates: start: 20190905, end: 20190905
  2. PHARMORUBICIN [Suspect]
     Active Substance: EPIRUBICIN
     Indication: HEPATIC CANCER
     Dosage: 30 MG, 1X/DAY
     Route: 013
     Dates: start: 20190905, end: 20190905

REACTIONS (5)
  - Off label use [Unknown]
  - Incorrect route of product administration [Unknown]
  - Palpitations [Recovering/Resolving]
  - Dizziness [Recovering/Resolving]
  - Tachycardia [Recovering/Resolving]

NARRATIVE: CASE EVENT DATE: 20190905
